FAERS Safety Report 8990171 (Version 1)
Quarter: 2012Q4

REPORT INFORMATION
  Report Type: 
  Country: US (occurrence: US)
  Receive Date: 20121228
  Receipt Date: 20121228
  Transmission Date: 20130627
  Serious: Yes (Other)
  Sender: FDA-Public Use
  Company Number: US-MYLANLABS-2012S1026021

PATIENT
  Age: 63 Year
  Sex: Male

DRUGS (1)
  1. BICALUTAMIDE TABLETS USP [Suspect]
     Indication: PROSTATE CANCER
     Route: 048
     Dates: start: 201102, end: 201207

REACTIONS (1)
  - Anaphylactic reaction [Recovered/Resolved]
